FAERS Safety Report 8307564-6 (Version None)
Quarter: 2012Q2

REPORT INFORMATION
  Report Type: 
  Country: None (occurrence: None)
  Receive Date: 20120424
  Receipt Date: 20120418
  Transmission Date: 20120825
  Serious: No
  Sender: FDA-Public Use
  Company Number: US-PFIZER INC-2012098243

PATIENT
  Sex: Female

DRUGS (4)
  1. ZITHROMAX [Suspect]
  2. ACETYLSALICYLIC ACID SRT [Suspect]
  3. TOPROL-XL [Suspect]
  4. FLEXERIL [Suspect]

REACTIONS (1)
  - DRUG HYPERSENSITIVITY [None]
